FAERS Safety Report 16326599 (Version 1)
Quarter: 2019Q2

REPORT INFORMATION
  Report Type: Spontaneous
  Country: US (occurrence: US)
  Receive Date: 20190517
  Receipt Date: 20190517
  Transmission Date: 20190711
  Serious: No
  Sender: FDA-Public Use
  Company Number: US-TAIHO ONCOLOGY  INC-EU-2018-01993

PATIENT
  Age: 54 Year
  Sex: Female
  Weight: 66.28 kg

DRUGS (3)
  1. XTAMPZA ER [Concomitant]
     Active Substance: OXYCODONE
     Dosage: NI
  2. LONSURF [Suspect]
     Active Substance: TIPIRACIL HYDROCHLORIDE\TRIFLURIDINE
     Dosage: CURRENT CYCLE 13 STARTED ON AN UNKNOWN DATE.
     Route: 048
  3. LONSURF [Suspect]
     Active Substance: TIPIRACIL HYDROCHLORIDE\TRIFLURIDINE
     Indication: COLON CANCER
     Dosage: DAILY DOSE: 60MG AM, 40MG PM. ?CURRENT CYCLE 5
     Route: 048
     Dates: start: 20180709

REACTIONS (4)
  - Malaise [Unknown]
  - Abdominal discomfort [Not Recovered/Not Resolved]
  - Weight increased [Unknown]
  - Alopecia [Unknown]

NARRATIVE: CASE EVENT DATE: 2018
